FAERS Safety Report 8901143 (Version 1)
Quarter: 2012Q4

REPORT INFORMATION
  Report Type: 
  Country: AU (occurrence: AU)
  Receive Date: 20121109
  Receipt Date: 20121109
  Transmission Date: 20130627
  Serious: Yes (Other)
  Sender: FDA-Public Use
  Company Number: AU-ACTELION-A-CH2012-73736

PATIENT
  Sex: Female

DRUGS (3)
  1. TRACLEER [Suspect]
     Indication: PRODUCT USED FOR UNKNOWN INDICATION
     Dosage: UNK mg, UNK
     Route: 048
  2. FLOLAN [Suspect]
  3. SILDENAFIL CITRATE [Suspect]

REACTIONS (2)
  - Ectopic pregnancy [Unknown]
  - Drug interaction [Unknown]
